FAERS Safety Report 20842864 (Version 6)
Quarter: 2022Q4

REPORT INFORMATION
  Report Type: Report from Study
  Country: US (occurrence: US)
  Receive Date: 20220518
  Receipt Date: 20221010
  Transmission Date: 20230113
  Serious: No
  Sender: FDA-Public Use
  Company Number: US-NOVARTISTESTPH-NVSC2022US113728

PATIENT
  Sex: Female

DRUGS (1)
  1. COSENTYX [Suspect]
     Active Substance: SECUKINUMAB
     Indication: Axial spondyloarthritis
     Dosage: 150 MG, QMO
     Route: 058

REACTIONS (6)
  - Skin disorder [Unknown]
  - Condition aggravated [Unknown]
  - COVID-19 [Unknown]
  - Pain [Unknown]
  - Decreased activity [Unknown]
  - Therapeutic product effect incomplete [Unknown]
